FAERS Safety Report 4735624-5 (Version None)
Quarter: 2005Q3

REPORT INFORMATION
  Report Type: 
  Country: None (occurrence: None)
  Receive Date: 20050805
  Receipt Date: 20050725
  Transmission Date: 20060218
  Serious: Yes (Death)
  Sender: FDA-Public Use
  Company Number: US-GLAXOSMITHKLINE-A0568856A

PATIENT
  Age: 55 Year
  Sex: Female

DRUGS (6)
  1. PAXIL [Suspect]
     Indication: ANXIETY
     Dosage: 20MG PER DAY
     Route: 048
     Dates: start: 20031006
  2. PROTONIX [Concomitant]
  3. CLARINEX [Concomitant]
  4. ATIVAN [Concomitant]
  5. IRON [Concomitant]
  6. CHEMOTHERAPY [Concomitant]
     Indication: BREAST CANCER

REACTIONS (6)
  - ANXIETY [None]
  - COMPLETED SUICIDE [None]
  - DEPRESSION [None]
  - HOMICIDAL IDEATION [None]
  - INTENTIONAL SELF-INJURY [None]
  - SUICIDAL IDEATION [None]
